FAERS Safety Report 4855000-4 (Version None)
Quarter: 2005Q4

REPORT INFORMATION
  Report Type: 
  Country: None (occurrence: None)
  Receive Date: 20051214
  Receipt Date: 20051129
  Transmission Date: 20060501
  Serious: Yes (Hospitalization, Other)
  Sender: FDA-Public Use
  Company Number: CA-2005-017720

PATIENT
  Sex: Female
  Weight: 2.7 kg

DRUGS (1)
  1. BETASERON [Suspect]
     Indication: RELAPSING-REMITTING MULTIPLE SCLEROSIS
     Dosage: 8 MIU, EVERY 2D,
     Dates: start: 19960101, end: 20040401

REACTIONS (4)
  - CONVULSION NEONATAL [None]
  - DRUG EXPOSURE BEFORE PREGNANCY [None]
  - DRUG EXPOSURE VIA BREAST MILK [None]
  - TREMOR NEONATAL [None]
